FAERS Safety Report 8134644-0 (Version None)
Quarter: 2012Q1

REPORT INFORMATION
  Report Type: 
  Country: None (occurrence: None)
  Receive Date: 20120214
  Receipt Date: 20120203
  Transmission Date: 20120608
  Serious: Yes (Hospitalization)
  Sender: FDA-Public Use
  Company Number: US-JNJFOC-20120202800

PATIENT
  Sex: Female
  Weight: 40.82 kg

DRUGS (3)
  1. REMICADE [Suspect]
     Indication: CROHN'S DISEASE
     Route: 042
     Dates: start: 20110801, end: 20120127
  2. PENTASA [Concomitant]
     Indication: CROHN'S DISEASE
     Dosage: DOSE: 3 TABLETS TWICE DAILY
     Route: 048
  3. REMICADE [Suspect]
     Route: 042
     Dates: start: 20080101, end: 20110801

REACTIONS (3)
  - LYMPHADENOPATHY [None]
  - INTESTINAL STENOSIS [None]
  - LYMPHADENITIS [None]
